FAERS Safety Report 7003842-1 (Version None)
Quarter: 2010Q3

REPORT INFORMATION
  Report Type: 
  Country: None (occurrence: None)
  Receive Date: 20100920
  Receipt Date: 20091208
  Transmission Date: 20110219
  Serious: No
  Sender: FDA-Public Use
  Company Number: US-WYE-H12558009

PATIENT
  Age: 37 Year
  Sex: Female
  Weight: 68.1 kg

DRUGS (2)
  1. PRISTIQ [Suspect]
     Indication: ANXIETY
     Dosage: UNKNOWN
     Route: 065
     Dates: start: 20091101
  2. AMBIEN [Concomitant]

REACTIONS (5)
  - AGGRESSION [None]
  - AGITATION [None]
  - CRYING [None]
  - RESTLESSNESS [None]
  - STRESS [None]
